FAERS Safety Report 24977269 (Version 1)
Quarter: 2025Q1

REPORT INFORMATION
  Report Type: Spontaneous
  Country: AR (occurrence: AR)
  Receive Date: 20250217
  Receipt Date: 20250217
  Transmission Date: 20250409
  Serious: Yes (Hospitalization, Other)
  Sender: TAKEDA
  Company Number: AR-TAKEDA-2025TUS004272

PATIENT
  Age: 11 Year
  Sex: Female

DRUGS (5)
  1. TEDUGLUTIDE [Suspect]
     Active Substance: TEDUGLUTIDE
     Indication: Short-bowel syndrome
  2. TEDUGLUTIDE [Suspect]
     Active Substance: TEDUGLUTIDE
     Indication: Intestinal atresia
  3. TEDUGLUTIDE [Suspect]
     Active Substance: TEDUGLUTIDE
     Dates: start: 20230420, end: 20241110
  4. TEDUGLUTIDE [Suspect]
     Active Substance: TEDUGLUTIDE
  5. LOPERAMIDE [Concomitant]
     Active Substance: LOPERAMIDE
     Dosage: 2 MILLIGRAM, TID

REACTIONS (14)
  - Catheter site infection [Unknown]
  - Pseudomonas test positive [Unknown]
  - Pyrexia [Unknown]
  - Subileus [Unknown]
  - Abnormal faeces [Unknown]
  - Weight decreased [Unknown]
  - Metabolic disorder [Unknown]
  - Memory impairment [Unknown]
  - Pain [Unknown]
  - Arthralgia [Unknown]
  - Complication associated with device [Unknown]
  - Abdominal distension [Recovered/Resolved]
  - Abdominal pain [Unknown]
  - Headache [Unknown]

NARRATIVE: CASE EVENT DATE: 20230801
